FAERS Safety Report 18709965 (Version 1)
Quarter: 2021Q1

REPORT INFORMATION
  Report Type: Other
  Country: US (occurrence: US)
  Receive Date: 20210106
  Receipt Date: 20210106
  Transmission Date: 20210419
  Serious: No
  Sender: FDA-Public Use
  Company Number: US-AMAG PHARMACEUTICALS, INC.-AMAG202004244

PATIENT
  Age: 22 Year
  Sex: Female

DRUGS (1)
  1. MAKENA [Suspect]
     Active Substance: HYDROXYPROGESTERONE CAPROATE
     Indication: PREMATURE DELIVERY
     Route: 030
     Dates: start: 20201106

REACTIONS (6)
  - Dizziness [Recovered/Resolved]
  - Hypoaesthesia [Recovered/Resolved]
  - Tinnitus [Recovered/Resolved]
  - Palpitations [Recovered/Resolved]
  - Blood pressure increased [Recovered/Resolved]
  - Injection site induration [Recovered/Resolved]
